FAERS Safety Report 13819221 (Version 1)
Quarter: 2017Q3

REPORT INFORMATION
  Report Type: Spontaneous
  Country: US (occurrence: US)
  Receive Date: 20170731
  Receipt Date: 20170731
  Transmission Date: 20171127
  Serious: Yes (Hospitalization, Disabling)
  Sender: FDA-Public Use
  Company Number: None

PATIENT
  Sex: Female
  Weight: 56.25 kg

DRUGS (5)
  1. CLONAZEPAM. [Suspect]
     Active Substance: CLONAZEPAM
     Indication: ANXIETY
     Dosage: ?          QUANTITY:90 TABLET(S);?
     Route: 048
     Dates: start: 20061214, end: 20161004
  2. SERTRALINE [Concomitant]
     Active Substance: SERTRALINE HYDROCHLORIDE
  3. VITAMIN D3 [Concomitant]
     Active Substance: CHOLECALCIFEROL
  4. LORATADINE. [Concomitant]
     Active Substance: LORATADINE
  5. VITAMIN B12 [Concomitant]
     Active Substance: CYANOCOBALAMIN

REACTIONS (23)
  - Impaired work ability [None]
  - Memory impairment [None]
  - Fatigue [None]
  - Depression [None]
  - Muscle spasms [None]
  - Neuralgia [None]
  - Depersonalisation/derealisation disorder [None]
  - Skin burning sensation [None]
  - Fear [None]
  - Hypersensitivity [None]
  - Stress [None]
  - Tremor [None]
  - Sleep paralysis [None]
  - Panic attack [None]
  - Ataxia [None]
  - Confusional state [None]
  - Insomnia [None]
  - Cognitive disorder [None]
  - Derealisation [None]
  - Arthralgia [None]
  - Vision blurred [None]
  - Nightmare [None]
  - Toothache [None]

NARRATIVE: CASE EVENT DATE: 20090801
